FAERS Safety Report 6508216-5 (Version None)
Quarter: 2009Q4

REPORT INFORMATION
  Report Type: 
  Country: None (occurrence: None)
  Receive Date: 20091221
  Receipt Date: 20081218
  Transmission Date: 20100525
  Serious: No
  Sender: FDA-Public Use
  Company Number: US-ASTRAZENECA-2008UW28333

PATIENT
  Age: 67 Year
  Sex: Male
  Weight: 89.8 kg

DRUGS (2)
  1. CRESTOR [Suspect]
     Dosage: UNKNOWN
     Route: 048
     Dates: start: 20080601
  2. 8 MEDICINES [Concomitant]

REACTIONS (1)
  - DYSPNOEA [None]
